FAERS Safety Report 25927606 (Version 2)
Quarter: 2025Q4

REPORT INFORMATION
  Report Type: Report from Study
  Country: JP (occurrence: JP)
  Receive Date: 20251016
  Receipt Date: 20251231
  Transmission Date: 20260119
  Serious: Yes (Hospitalization, Other)
  Sender: RECORDATI
  Company Number: JP-SA-2024SA142441

PATIENT
  Age: 74 Year
  Sex: Male
  Weight: 74 kg

DRUGS (30)
  1. ENJAYMO [Suspect]
     Active Substance: SUTIMLIMAB-JOME
     Indication: Cold type haemolytic anaemia
     Dosage: 6.5 GRAM, QW
     Route: 041
     Dates: start: 20221018, end: 20221025
  2. ENJAYMO [Suspect]
     Active Substance: SUTIMLIMAB-JOME
     Dosage: 6.5 GRAM, QOW/Q2W
     Route: 041
     Dates: start: 20221108, end: 20221122
  3. ENJAYMO [Suspect]
     Active Substance: SUTIMLIMAB-JOME
     Dosage: 6.5 GRAM, QOW
     Route: 041
     Dates: start: 20221207, end: 20230301
  4. ENJAYMO [Suspect]
     Active Substance: SUTIMLIMAB-JOME
     Dosage: 6.5 G, 1X
     Route: 041
     Dates: start: 20230314, end: 20230314
  5. ENJAYMO [Suspect]
     Active Substance: SUTIMLIMAB-JOME
     Dosage: 6.5 GRAM, QOW
     Route: 041
     Dates: start: 20230329, end: 20230510
  6. ENJAYMO [Suspect]
     Active Substance: SUTIMLIMAB-JOME
     Dosage: 6.5 GRAM, QOW
     Route: 041
     Dates: start: 20230607, end: 20230719
  7. ENJAYMO [Suspect]
     Active Substance: SUTIMLIMAB-JOME
     Dosage: 6.5 G, 1X
     Route: 041
     Dates: start: 20230801, end: 20230801
  8. ENJAYMO [Suspect]
     Active Substance: SUTIMLIMAB-JOME
     Dosage: 6.5 GRAM, QOW
     Route: 041
     Dates: start: 20230816, end: 20231220
  9. ENJAYMO [Suspect]
     Active Substance: SUTIMLIMAB-JOME
     Dosage: 6.5 G, 1X
     Route: 041
     Dates: start: 20240105, end: 20240105
  10. ENJAYMO [Suspect]
     Active Substance: SUTIMLIMAB-JOME
     Dosage: 6.5 GRAM, QOW
     Route: 041
     Dates: start: 20240117, end: 20240717
  11. ENJAYMO [Suspect]
     Active Substance: SUTIMLIMAB-JOME
     Dosage: 6.5 GRAM, QOW
     Route: 041
     Dates: start: 20240807, end: 20241113
  12. ENJAYMO [Suspect]
     Active Substance: SUTIMLIMAB-JOME
     Dosage: 6.5 GRAM, Q3W
     Route: 041
     Dates: start: 20241204
  13. GEMCITABINE HYDROCHLORIDE [Suspect]
     Active Substance: GEMCITABINE HYDROCHLORIDE
     Indication: Product used for unknown indication
     Dosage: UNK
     Route: 041
     Dates: start: 20221213, end: 20221217
  14. CISPLATIN [Suspect]
     Active Substance: CISPLATIN
     Indication: Product used for unknown indication
     Dosage: UNK
     Route: 041
     Dates: start: 20221214, end: 20230224
  15. LEVOFLOXACIN [Concomitant]
     Active Substance: LEVOFLOXACIN
     Indication: Product used for unknown indication
     Dosage: UNK, TABLETS
     Dates: start: 20221018, end: 20221027
  16. AMLODIPINE BESYLATE [Concomitant]
     Active Substance: AMLODIPINE BESYLATE
     Indication: Product used for unknown indication
     Dosage: FROM BEFORE THIS DRUG ADMINISTRATION, TABLETS
     Dates: end: 20221216
  17. TELMISARTAN [Concomitant]
     Active Substance: TELMISARTAN
     Indication: Product used for unknown indication
     Dosage: FROM BEFORE THIS DRUG ADMINISTRATION TO ONGOING, TABLETS
  18. ROSUVASTATIN [Concomitant]
     Active Substance: ROSUVASTATIN
     Indication: Product used for unknown indication
     Dosage: FROM BEFORE THIS DRUG ADMINISTRATION TO ONGOING, TABLETS
  19. URSODIOL [Concomitant]
     Active Substance: URSODIOL
     Indication: Prophylaxis
     Dosage: FROM BEFORE THIS DRUG ADMINISTRATION TO ONGOING, TABLETS
  20. BENZBROMARONE [Concomitant]
     Active Substance: BENZBROMARONE
     Indication: Product used for unknown indication
     Dosage: FROM BEFORE THIS DRUG ADMINISTRATION TO ONGOING, TABLETS
  21. HARNAL [Concomitant]
     Active Substance: TAMSULOSIN HYDROCHLORIDE
     Indication: Product used for unknown indication
     Dosage: BEFORE THIS DRUG ADMINISTRATION, TABLETS
     Dates: end: 20221124
  22. HARNAL [Concomitant]
     Active Substance: TAMSULOSIN HYDROCHLORIDE
     Dosage: UNK
     Dates: start: 202212, end: 20221212
  23. MIRABEGRON [Concomitant]
     Active Substance: MIRABEGRON
     Indication: Product used for unknown indication
     Dosage: FROM BEFORE THIS DRUG ADMINISTRATION TO ONGOING, TABLETS
  24. SOLIFENACIN SUCCINATE [Concomitant]
     Active Substance: SOLIFENACIN SUCCINATE
     Indication: Product used for unknown indication
     Dosage: FROM BEFORE THIS DRUG ADMINISTRATION
     Dates: end: 20221212
  25. TAMSULOSIN HYDROCHLORIDE [Concomitant]
     Active Substance: TAMSULOSIN HYDROCHLORIDE
     Indication: Product used for unknown indication
     Dosage: UNK. OD TABLETS
     Dates: start: 20221125, end: 20221206
  26. TAMSULOSIN HYDROCHLORIDE [Concomitant]
     Active Substance: TAMSULOSIN HYDROCHLORIDE
     Dosage: UNK. OD TABLETS
     Dates: start: 20221213
  27. TOVIAZ [Concomitant]
     Active Substance: FESOTERODINE FUMARATE
     Indication: Product used for unknown indication
     Dosage: UNK
     Dates: start: 20221213
  28. MAGNESIUM OXIDE [Concomitant]
     Active Substance: MAGNESIUM OXIDE
     Indication: Product used for unknown indication
     Dosage: UNK, TABLETS
     Dates: start: 20221218, end: 20221218
  29. Colac [Concomitant]
     Indication: Product used for unknown indication
     Dosage: FROM BEFORE THIS DRUG ADMINISTRATION
     Dates: end: 2022
  30. AMLODIPINE [Concomitant]
     Active Substance: AMLODIPINE BESYLATE
     Indication: Product used for unknown indication
     Dosage: UNK
     Dates: start: 20230111

REACTIONS (13)
  - Bladder cancer [Not Recovered/Not Resolved]
  - Renal impairment [Recovered/Resolved]
  - Hyponatraemia [Recovered/Resolved]
  - Neutrophil count decreased [Recovered/Resolved]
  - Anaemia [Recovered/Resolved]
  - COVID-19 [Recovered/Resolved]
  - Oedema peripheral [Recovered/Resolved]
  - Diarrhoea [Recovered/Resolved]
  - Nausea [Recovered/Resolved]
  - Upper respiratory tract infection [Recovered/Resolved]
  - Off label use [Recovered/Resolved]
  - Inappropriate schedule of product administration [Recovered/Resolved]
  - Product preparation issue [Recovered/Resolved]

NARRATIVE: CASE EVENT DATE: 20221027
